FAERS Safety Report 23021005 (Version 5)
Quarter: 2024Q1

REPORT INFORMATION
  Report Type: Spontaneous
  Country: GB (occurrence: GB)
  Receive Date: 20231003
  Receipt Date: 20240112
  Transmission Date: 20240410
  Serious: Yes (Life-Threatening, Hospitalization, Other)
  Sender: FDA-Public Use
  Company Number: GB-MHRA-ADR 28108350

PATIENT
  Age: 59 Year
  Sex: Male
  Weight: 66.4 kg

DRUGS (13)
  1. PEMBROLIZUMAB [Suspect]
     Active Substance: PEMBROLIZUMAB
     Indication: Lung squamous cell carcinoma stage III
     Dosage: UNK
  2. CLOZAPINE [Suspect]
     Active Substance: CLOZAPINE
     Indication: Schizophrenia
     Dosage: 900 MILLIGRAM, QD
     Route: 050
     Dates: start: 20090106, end: 20230913
  3. CLOZAPINE [Suspect]
     Active Substance: CLOZAPINE
     Dosage: 900 MILLIGRAM, QD
     Route: 050
     Dates: start: 20231023, end: 20231212
  4. LAMOTRIGINE [Concomitant]
     Active Substance: LAMOTRIGINE
     Dosage: 100 MILLIGRAM, QD
     Route: 050
  5. LAMOTRIGINE [Concomitant]
     Active Substance: LAMOTRIGINE
     Dosage: 100 MILLIGRAM
     Route: 050
  6. LANSOPRAZOLE [Concomitant]
     Active Substance: LANSOPRAZOLE
     Dosage: 30 MILLIGRAM, QD
     Route: 050
  7. LANSOPRAZOLE [Concomitant]
     Active Substance: LANSOPRAZOLE
     Dosage: 30 MILLIGRAM
     Route: 050
  8. ZOPICLONE [Concomitant]
     Active Substance: ZOPICLONE
     Dosage: 7.5 MILLIGRAM, QD
     Route: 050
  9. ZOPICLONE [Concomitant]
     Active Substance: ZOPICLONE
     Dosage: 7.5 MILLIGRAM
     Route: 050
  10. DIAZEPAM [Concomitant]
     Active Substance: DIAZEPAM
     Dosage: 2 MILLIGRAM, Q12H
     Route: 050
  11. DIAZEPAM [Concomitant]
     Active Substance: DIAZEPAM
     Dosage: 2 MILLIGRAM
     Route: 050
  12. CARBOHYDRATES\FATTY ACIDS\MINERALS\PROTEIN\VITAMINS [Concomitant]
     Active Substance: CARBOHYDRATES\FATTY ACIDS\MINERALS\PROTEIN\VITAMINS
     Dosage: 1 DOSAGE FORM
     Route: 050
  13. CARBOHYDRATES\FATTY ACIDS\MINERALS\PROTEIN\VITAMINS [Concomitant]
     Active Substance: CARBOHYDRATES\FATTY ACIDS\MINERALS\PROTEIN\VITAMINS
     Route: 050

REACTIONS (17)
  - Lung squamous cell carcinoma stage III [Not Recovered/Not Resolved]
  - Dizziness [Unknown]
  - Contraindicated product administered [Not Recovered/Not Resolved]
  - Off label use [Not Recovered/Not Resolved]
  - Agranulocytosis [Recovered/Resolved]
  - Agranulocytosis [Recovered/Resolved]
  - Platelet count increased [Recovered/Resolved]
  - Neutropenia [Recovered/Resolved]
  - Leukopenia [Recovered/Resolved]
  - Neutrophil count decreased [Recovered/Resolved]
  - Blood pressure decreased [Recovered/Resolved]
  - Body temperature increased [Recovered/Resolved]
  - Diarrhoea [Recovered/Resolved]
  - Neutropenia [Recovered/Resolved]
  - Leukopenia [Recovered/Resolved]
  - Neutrophil count decreased [Recovered/Resolved]
  - Platelet count increased [Recovered/Resolved]

NARRATIVE: CASE EVENT DATE: 20230706
